FAERS Safety Report 8352687-9 (Version None)
Quarter: 2012Q2

REPORT INFORMATION
  Report Type: 
  Country: None (occurrence: None)
  Receive Date: 20120511
  Receipt Date: 20120504
  Transmission Date: 20120825
  Serious: No
  Sender: FDA-Public Use
  Company Number: US-B.I. PHARMACEUTICALS,INC./RIDGEFIELD-2012-BP-10160BP

PATIENT
  Age: 61 Year
  Sex: Female

DRUGS (3)
  1. ASPIRIN [Concomitant]
     Indication: ATRIAL FIBRILLATION
  2. CLOPIDOGREL [Concomitant]
     Dates: start: 20120503
  3. PRADAXA [Suspect]
     Indication: ATRIAL FIBRILLATION
     Dosage: 300 MG
     Route: 048

REACTIONS (2)
  - HAEMOGLOBIN DECREASED [None]
  - HAEMATOCRIT DECREASED [None]
